FAERS Safety Report 7937603-3 (Version None)
Quarter: 2011Q4

REPORT INFORMATION
  Report Type: 
  Country: None (occurrence: None)
  Receive Date: 20111123
  Receipt Date: 20111115
  Transmission Date: 20120403
  Serious: Yes (Hospitalization, Other)
  Sender: FDA-Public Use
  Company Number: CA-JNJFOC-20111107798

PATIENT
  Sex: Female
  Weight: 66 kg

DRUGS (6)
  1. BENADRYL [Concomitant]
     Indication: PREMEDICATION
     Route: 048
  2. ACETAMINOPHEN [Concomitant]
     Indication: PREMEDICATION
     Route: 048
  3. REMICADE [Suspect]
     Indication: PRODUCT USED FOR UNKNOWN INDICATION
     Route: 042
     Dates: start: 20111103
  4. SOLU-CORTEF [Concomitant]
     Indication: PREMEDICATION
     Route: 042
  5. REMICADE [Suspect]
     Route: 042
     Dates: start: 20100311, end: 20110421
  6. REMICADE [Suspect]
     Route: 042
     Dates: start: 20111115

REACTIONS (7)
  - TINNITUS [None]
  - ARTHRITIS [None]
  - HYPERHIDROSIS [None]
  - HYPOKINESIA [None]
  - TACHYCARDIA [None]
  - ERYTHEMA [None]
  - INFUSION RELATED REACTION [None]
